FAERS Safety Report 21899388 (Version 1)
Quarter: 2023Q1

REPORT INFORMATION
  Report Type: Spontaneous
  Country: US (occurrence: US)
  Receive Date: 20230123
  Receipt Date: 20230123
  Transmission Date: 20230418
  Serious: No
  Sender: FDA-Public Use
  Company Number: US-MYLANLABS-2022M1138806

PATIENT
  Sex: Female
  Weight: 54.43 kg

DRUGS (1)
  1. ALPRAZOLAM [Suspect]
     Active Substance: ALPRAZOLAM
     Indication: Sleep disorder
     Dosage: 0.25 MILLIGRAM
     Route: 065

REACTIONS (7)
  - Insomnia [Unknown]
  - Withdrawal syndrome [Unknown]
  - Nausea [Unknown]
  - Restlessness [Unknown]
  - Fatigue [Unknown]
  - Irritability [Unknown]
  - Drug ineffective [Unknown]
